FAERS Safety Report 19481869 (Version 1)
Quarter: 2021Q3

REPORT INFORMATION
  Report Type: Spontaneous
  Country: FR (occurrence: FR)
  Receive Date: 20210701
  Receipt Date: 20210701
  Transmission Date: 20211014
  Serious: Yes (Hospitalization)
  Sender: FDA-Public Use
  Company Number: FR-ACCORD-230014

PATIENT
  Age: 34 Year
  Sex: Female
  Weight: 54.75 kg

DRUGS (11)
  1. METFORMIN [Suspect]
     Active Substance: METFORMIN HYDROCHLORIDE
     Indication: TYPE 2 DIABETES MELLITUS
     Route: 048
     Dates: start: 2007
  2. MIANSERIN [Concomitant]
     Active Substance: MIANSERIN
  3. PREGABALIN. [Concomitant]
     Active Substance: PREGABALIN
  4. LAROXYL [Concomitant]
     Active Substance: AMITRIPTYLINE HYDROCHLORIDE
     Dosage: STRENGTH: 25 MG
  5. ESOMEPRAZOLE/ESOMEPRAZOLE MAGNESIUM/ESOMEPRAZOLE SODIUM [Suspect]
     Active Substance: ESOMEPRAZOLE
     Indication: PRODUCT USED FOR UNKNOWN INDICATION
     Route: 048
  6. TRAMADOL. [Concomitant]
     Active Substance: TRAMADOL
  7. COLCHICINE. [Concomitant]
     Active Substance: COLCHICINE
  8. SERESTA [Concomitant]
     Active Substance: OXAZEPAM
     Dosage: STRENGTH: 10 MG
  9. VERSATIS [Concomitant]
     Active Substance: LIDOCAINE
  10. PARACETAMOL [Concomitant]
     Active Substance: ACETAMINOPHEN
  11. XATRAL [Concomitant]
     Active Substance: ALFUZOSIN
     Dosage: STRENGTH: 10 MG

REACTIONS (1)
  - Vitamin B12 deficiency [Recovering/Resolving]
